FAERS Safety Report 7167000-2 (Version None)
Quarter: 2010Q4

REPORT INFORMATION
  Report Type: 
  Country: None (occurrence: None)
  Receive Date: 20101216
  Receipt Date: 20101213
  Transmission Date: 20110411
  Serious: Yes (Hospitalization)
  Sender: FDA-Public Use
  Company Number: A0899545A

PATIENT
  Age: 82 Year
  Sex: Female

DRUGS (13)
  1. LOVAZA [Suspect]
     Dosage: 2CAP PER DAY
     Route: 048
     Dates: start: 20080601
  2. COUMADIN [Concomitant]
  3. VYTORIN [Concomitant]
  4. TAMBOCOR [Concomitant]
  5. DIOVAN [Concomitant]
  6. SULAR [Concomitant]
  7. ALIGN [Concomitant]
  8. EYE DROPS [Concomitant]
     Indication: GLAUCOMA
  9. ZOLOFT [Concomitant]
  10. ESTER C [Concomitant]
  11. CALCIUM [Concomitant]
  12. ICAPS [Concomitant]
  13. UNKNOWN MEDICATION [Concomitant]

REACTIONS (3)
  - BILE DUCT STONE [None]
  - INFECTION [None]
  - TRANSIENT ISCHAEMIC ATTACK [None]
